FAERS Safety Report 4959138-2 (Version None)
Quarter: 2006Q1

REPORT INFORMATION
  Report Type: 
  Country: None (occurrence: None)
  Receive Date: 20060127
  Receipt Date: 20050307
  Transmission Date: 20060701
  Serious: Yes (Hospitalization, Other)
  Sender: FDA-Public Use
  Company Number: 05-03-0365

PATIENT
  Age: 15 Year
  Sex: Male

DRUGS (5)
  1. CLOZAPINE [Suspect]
     Indication: BIPOLAR DISORDER
     Dosage: 200MG QD, ORAL
     Route: 048
     Dates: start: 20050101, end: 20050201
  2. HALOPERIDOL [Suspect]
     Indication: ABNORMAL BEHAVIOUR
     Dosage: 60MG QD
     Dates: end: 20050131
  3. HALOPERIDOL [Suspect]
     Indication: AGGRESSION
     Dosage: 60MG QD
     Dates: end: 20050131
  4. ZYPREXA [Suspect]
     Indication: ABNORMAL BEHAVIOUR
     Dosage: PRN Q6H, INTRAMUSCULAR
     Route: 030
  5. ZYPREXA [Suspect]
     Indication: AGGRESSION
     Dosage: PRN Q6H, INTRAMUSCULAR
     Route: 030

REACTIONS (1)
  - NEUROLEPTIC MALIGNANT SYNDROME [None]
